FAERS Safety Report 25762271 (Version 2)
Quarter: 2025Q3

REPORT INFORMATION
  Report Type: Spontaneous
  Country: PK (occurrence: PK)
  Receive Date: 20250904
  Receipt Date: 20250910
  Transmission Date: 20251020
  Serious: Yes (Other)
  Sender: PFIZER
  Company Number: PK-PFIZER INC-PV202500017718

PATIENT
  Age: 67 Year
  Sex: Female

DRUGS (6)
  1. IBRANCE [Suspect]
     Active Substance: PALBOCICLIB
     Indication: Breast cancer metastatic
     Route: 048
     Dates: start: 202311
  2. LETROZOLE [Concomitant]
     Active Substance: LETROZOLE
     Dosage: 2.5 MG, 1X/DAY
  3. DRATE [Concomitant]
     Dosage: 70 MG, WEEKLY (1 TABLET)
  4. TONOFLEX P [Concomitant]
     Indication: Pain
  5. FILGRASTIM [Concomitant]
     Active Substance: FILGRASTIM
     Route: 058
  6. ZA [Concomitant]

REACTIONS (3)
  - Metastasis [Recovering/Resolving]
  - Pain [Unknown]
  - Product prescribing error [Unknown]
